FAERS Safety Report 15329735 (Version 1)
Quarter: 2018Q3

REPORT INFORMATION
  Report Type: Spontaneous
  Country: US (occurrence: US)
  Receive Date: 20180823
  Receipt Date: 20180823
  Transmission Date: 20181010
  Serious: No
  Sender: FDA-Public Use
  Company Number: None

PATIENT
  Age: 12 Year
  Sex: Female

DRUGS (1)
  1. NORDITROPIN [Suspect]
     Active Substance: SOMATROPIN
     Indication: HYPOPITUITARISM
     Route: 058
     Dates: start: 20180109

REACTIONS (6)
  - Headache [None]
  - Insurance issue [None]
  - Product substitution issue [None]
  - Eye disorder [None]
  - Drug intolerance [None]
  - Nausea [None]

NARRATIVE: CASE EVENT DATE: 20180821
